FAERS Safety Report 9272163 (Version 1)
Quarter: 2013Q2

REPORT INFORMATION
  Report Type: Report from Study
  Country: DE (occurrence: DE)
  Receive Date: 20130506
  Receipt Date: 20130506
  Transmission Date: 20140414
  Serious: Yes (Other)
  Sender: FDA-Public Use
  Company Number: DE-BAYER-2011-076595

PATIENT
  Age: 23 Year
  Sex: Female

DRUGS (2)
  1. EXTAVIA [Suspect]
     Indication: MULTIPLE SCLEROSIS
     Dosage: 1 ML, QOD
     Route: 058
     Dates: start: 20100928
  2. IBUPROFEN [Concomitant]
     Dosage: 400 MG, UNK
     Route: 048

REACTIONS (7)
  - Central nervous system lesion [Unknown]
  - Brain oedema [Unknown]
  - Scarlet fever [None]
  - Multiple sclerosis relapse [Recovered/Resolved]
  - Hypoaesthesia [Recovered/Resolved]
  - Sensory disturbance [Recovered/Resolved]
  - Agitation [Recovered/Resolved]
